FAERS Safety Report 5287781-2 (Version None)
Quarter: 2007Q2

REPORT INFORMATION
  Report Type: 
  Country: None (occurrence: None)
  Receive Date: 20070402
  Receipt Date: 20070402
  Transmission Date: 20071010
  Serious: Yes (Other)
  Sender: FDA-Public Use
  Company Number: None

PATIENT
  Age: 37 Year
  Sex: Female
  Weight: 74.8435 kg

DRUGS (2)
  1. ZELNORM [Suspect]
     Indication: CONSTIPATION
     Dosage: 2MG TAB ONCE A DAY PO
     Route: 048
     Dates: start: 20070207, end: 20070209
  2. ZELNORM [Suspect]
     Indication: IRRITABLE BOWEL SYNDROME
     Dosage: 2MG TAB ONCE A DAY PO
     Route: 048
     Dates: start: 20070207, end: 20070209

REACTIONS (7)
  - ADVERSE DRUG REACTION [None]
  - CHEST DISCOMFORT [None]
  - DEHYDRATION [None]
  - DIARRHOEA [None]
  - DIZZINESS [None]
  - PALPITATIONS [None]
  - PARAESTHESIA [None]
